FAERS Safety Report 19167390 (Version 1)
Quarter: 2021Q2

REPORT INFORMATION
  Report Type: Spontaneous
  Country: US (occurrence: US)
  Receive Date: 20210422
  Receipt Date: 20210422
  Transmission Date: 20210717
  Serious: Yes (Other)
  Sender: FDA-Public Use
  Company Number: US-SA-2021SA129944

PATIENT
  Age: 49 Year
  Sex: Female

DRUGS (2)
  1. PFIZER?BIONTECH COVID?19 VACCINE [Suspect]
     Active Substance: TOZINAMERAN
     Dosage: UNK
     Dates: start: 20210409, end: 20210409
  2. DUPIXENT [Suspect]
     Active Substance: DUPILUMAB
     Indication: DERMATITIS ATOPIC
     Route: 058
     Dates: start: 202011

REACTIONS (9)
  - Dizziness [Unknown]
  - Food poisoning [Unknown]
  - Intentional dose omission [Unknown]
  - Road traffic accident [Unknown]
  - Nausea [Unknown]
  - Loss of consciousness [Unknown]
  - Fatigue [Unknown]
  - Erythema [Unknown]
  - Vomiting [Unknown]

NARRATIVE: CASE EVENT DATE: 202104
